FAERS Safety Report 6856712-3 (Version None)
Quarter: 2010Q3

REPORT INFORMATION
  Report Type: 
  Country: None (occurrence: None)
  Receive Date: 20100719
  Receipt Date: 20100714
  Transmission Date: 20110219
  Serious: Yes (Other)
  Sender: FDA-Public Use
  Company Number: CHPA2010US11490

PATIENT
  Age: 61 Year
  Sex: Female
  Weight: 90.703 kg

DRUGS (2)
  1. EXCEDRIN (MIGRAINE) [Suspect]
     Indication: MIGRAINE
     Dosage: UNK, UNK
     Route: 048
     Dates: start: 19980101, end: 20100101
  2. IBUPROFEN [Concomitant]
     Indication: ARTHRITIS

REACTIONS (4)
  - BREAST CANCER [None]
  - DECREASED APPETITE [None]
  - NAUSEA [None]
  - VERTIGO [None]
